FAERS Safety Report 11026319 (Version 1)
Quarter: 2015Q2

REPORT INFORMATION
  Report Type: Spontaneous
  Country: US (occurrence: None)
  Receive Date: 20150413
  Receipt Date: 20150413
  Transmission Date: 20150821
  Serious: No
  Sender: FDA-Public Use
  Company Number: None

PATIENT
  Age: 30 Year
  Sex: Male
  Weight: 83.92 kg

DRUGS (10)
  1. ONDANSETRON HCL [Suspect]
     Active Substance: ONDANSETRON HYDROCHLORIDE
     Indication: VOMITING
     Dosage: 1 TABLET  EVERY 8 HOURS, PRN  TAKEN BY MOUTH
     Route: 048
     Dates: start: 20150223, end: 20150410
  2. PROZAC (FLUOXETINE) [Concomitant]
  3. ZOFRAN [Concomitant]
     Active Substance: ONDANSETRON HYDROCHLORIDE
  4. ONDANSETRON HCL [Suspect]
     Active Substance: ONDANSETRON HYDROCHLORIDE
     Indication: MUSCLE SPASMS
     Dosage: 1 TABLET  EVERY 8 HOURS, PRN  TAKEN BY MOUTH
     Route: 048
     Dates: start: 20150223, end: 20150410
  5. WELLBUTRIN XL (BUPROPION XL) [Concomitant]
  6. BUSPAR (BUSPIRONE)? [Concomitant]
  7. ONDANSETRON HCL [Suspect]
     Active Substance: ONDANSETRON HYDROCHLORIDE
     Indication: NAUSEA
     Dosage: 1 TABLET  EVERY 8 HOURS, PRN  TAKEN BY MOUTH
     Route: 048
     Dates: start: 20150223, end: 20150410
  8. ONDANSETRON HCL [Suspect]
     Active Substance: ONDANSETRON HYDROCHLORIDE
     Indication: GASTROINTESTINAL MOTILITY DISORDER
     Dosage: 1 TABLET  EVERY 8 HOURS, PRN  TAKEN BY MOUTH
     Route: 048
     Dates: start: 20150223, end: 20150410
  9. NEXIUM [Concomitant]
     Active Substance: ESOMEPRAZOLE MAGNESIUM
  10. CLARINEX SYRUP (DESLORATADINE) [Concomitant]

REACTIONS (5)
  - Nausea [None]
  - Drug ineffective [None]
  - Product quality issue [None]
  - Vomiting [None]
  - Product substitution issue [None]

NARRATIVE: CASE EVENT DATE: 20150223
